FAERS Safety Report 8542460-0 (Version None)
Quarter: 2012Q3

REPORT INFORMATION
  Report Type: 
  Country: None (occurrence: None)
  Receive Date: 20120726
  Receipt Date: 20110720
  Transmission Date: 20120928
  Serious: Yes (Hospitalization)
  Sender: FDA-Public Use
  Company Number: US-ASTRAZENECA-2008UW24104

PATIENT
  Age: 19360 Day
  Sex: Female
  Weight: 113.4 kg

DRUGS (16)
  1. SEROQUEL [Suspect]
     Indication: INSOMNIA
     Route: 048
     Dates: end: 20061101
  2. SEROQUEL [Suspect]
     Route: 048
     Dates: start: 20061128
  3. LEXAPRO [Concomitant]
     Dates: start: 20070101
  4. BENICAR HCT [Concomitant]
     Dosage: 40/12.5 MG
     Dates: start: 20070828
  5. SEROQUEL [Suspect]
     Dosage: 100-200MG
     Route: 048
     Dates: start: 20061101, end: 20070828
  6. EFFEXOR\EFFEXOR XR [Concomitant]
     Dosage: 75 MG DAILY TO 150 MG
     Dates: start: 20061128
  7. EFFEXOR\EFFEXOR XR [Concomitant]
     Dates: start: 20070101
  8. TRAZODONE HYDROCHLORIDE [Concomitant]
  9. BACLOFEN [Concomitant]
     Dates: start: 20061128
  10. SEROQUEL [Suspect]
     Indication: DEPRESSION
     Route: 048
     Dates: end: 20061101
  11. SEROQUEL [Suspect]
     Route: 048
     Dates: start: 20070828
  12. SEROQUEL [Suspect]
     Route: 048
     Dates: start: 20070828
  13. SEROQUEL [Suspect]
     Route: 048
     Dates: start: 20061128
  14. SEROQUEL [Suspect]
     Dosage: 100-200MG
     Route: 048
     Dates: start: 20061101, end: 20070828
  15. ASPIRIN [Concomitant]
     Dates: start: 20070103
  16. REQUIP [Concomitant]
     Dates: start: 20070828

REACTIONS (2)
  - TYPE 2 DIABETES MELLITUS [None]
  - VISION BLURRED [None]
